FAERS Safety Report 9025335 (Version 1)
Quarter: 2012Q4

REPORT INFORMATION
  Report Type: 
  Country: BR (occurrence: BR)
  Receive Date: 20121211
  Receipt Date: 20121211
  Transmission Date: 20130627
  Serious: Yes (Other)
  Sender: FDA-Public Use
  Company Number: PHHY2012BR094456

PATIENT
  Age: 83 Year
  Sex: Female
  Weight: 69 kg

DRUGS (3)
  1. DIOVAN AMLO FIX [Suspect]
     Indication: HYPERTENSION
     Dosage: 1 DF(160 mg vals and 5 mg amlo) daily
  2. DIOVAN TRIPLE [Suspect]
     Dosage: 2 tablets daily
     Route: 048
  3. NIFELAT [Suspect]
     Indication: HYPERTENSION
     Dosage: 1 DF, one in the morning and one in night

REACTIONS (2)
  - Blood pressure inadequately controlled [Recovered/Resolved]
  - Drug ineffective [Recovered/Resolved]
